FAERS Safety Report 16452064 (Version 1)
Quarter: 2019Q2

REPORT INFORMATION
  Report Type: Spontaneous
  Country: US (occurrence: US)
  Receive Date: 20190619
  Receipt Date: 20190619
  Transmission Date: 20190711
  Serious: Yes (Other)
  Sender: FDA-Public Use
  Company Number: US-ROCHE-2189661

PATIENT
  Sex: Male

DRUGS (2)
  1. ACTEMRA [Suspect]
     Active Substance: TOCILIZUMAB
     Indication: TRANSPLANT REJECTION
     Route: 065
  2. ACTEMRA [Suspect]
     Active Substance: TOCILIZUMAB
     Indication: RENAL TRANSPLANT

REACTIONS (5)
  - Serum sickness [Unknown]
  - Infusion site cellulitis [Unknown]
  - Intentional product use issue [Unknown]
  - Device related sepsis [Unknown]
  - Off label use [Unknown]
